FAERS Safety Report 5991261-6 (Version None)
Quarter: 2008Q4

REPORT INFORMATION
  Report Type: 
  Country: None (occurrence: None)
  Receive Date: 20081211
  Receipt Date: 20081201
  Transmission Date: 20090506
  Serious: Yes (Hospitalization)
  Sender: FDA-Public Use
  Company Number: FR-JNJFOC-20081200122

PATIENT
  Sex: Male

DRUGS (7)
  1. TOPIRAMATE [Suspect]
     Indication: STATUS EPILEPTICUS
     Route: 048
  2. TRILEPTAL [Suspect]
     Route: 048
  3. TRILEPTAL [Suspect]
     Indication: STATUS EPILEPTICUS
     Route: 048
  4. KEPPRA [Suspect]
     Indication: STATUS EPILEPTICUS
     Route: 048
  5. NEURONTIN [Concomitant]
     Indication: STATUS EPILEPTICUS
  6. IMUREL [Concomitant]
     Indication: AUTOIMMUNE HEPATITIS
  7. AMLOD [Concomitant]

REACTIONS (2)
  - DERMATITIS EXFOLIATIVE [None]
  - RENAL COLIC [None]
